FAERS Safety Report 4443150-6 (Version None)
Quarter: 2004Q3

REPORT INFORMATION
  Report Type: 
  Country: None (occurrence: None)
  Receive Date: 20040901
  Receipt Date: 20040820
  Transmission Date: 20050211
  Serious: Yes (Hospitalization, Disabling)
  Sender: FDA-Public Use
  Company Number: 2004UW16843

PATIENT
  Age: 92 Year
  Sex: Female
  Weight: 32 kg

DRUGS (5)
  1. ELAVIL [Suspect]
     Indication: POST HERPETIC NEURALGIA
     Dosage: 10 MG TID PO
     Route: 048
     Dates: start: 20040615, end: 20040802
  2. CEROCRAL [Concomitant]
  3. VASOTEC [Concomitant]
  4. NEUROTROPIN [Concomitant]
  5. RISEDRONATE SODIUM [Concomitant]

REACTIONS (3)
  - BLOOD CREATINE PHOSPHOKINASE INCREASED [None]
  - DEPRESSED LEVEL OF CONSCIOUSNESS [None]
  - NEUROLEPTIC MALIGNANT SYNDROME [None]
